FAERS Safety Report 5144213-2 (Version None)
Quarter: 2006Q4

REPORT INFORMATION
  Report Type: 
  Country: None (occurrence: None)
  Receive Date: 20061106
  Receipt Date: 20061030
  Transmission Date: 20070319
  Serious: Yes (Hospitalization)
  Sender: FDA-Public Use
  Company Number: FR-BRISTOL-MYERS SQUIBB COMPANY-13563838

PATIENT
  Age: 73 Year
  Sex: Male

DRUGS (6)
  1. VASTEN [Suspect]
     Route: 048
  2. CORVASAL [Suspect]
     Route: 048
  3. TRIATEC [Suspect]
     Dates: end: 20060901
  4. TILDIEM [Suspect]
     Indication: MYOCARDIAL INFARCTION
     Route: 048
  5. ALIMTA [Suspect]
     Indication: BRONCHIAL CARCINOMA
     Route: 042
     Dates: start: 20060801, end: 20060901
  6. PREVISCAN [Suspect]
     Indication: DEEP VEIN THROMBOSIS

REACTIONS (1)
  - BLOOD CREATININE INCREASED [None]
